FAERS Safety Report 18081088 (Version 2)
Quarter: 2020Q4

REPORT INFORMATION
  Report Type: Spontaneous
  Country: US (occurrence: US)
  Receive Date: 20200728
  Receipt Date: 20201015
  Transmission Date: 20210113
  Serious: Yes (Hospitalization)
  Sender: FDA-Public Use
  Company Number: US-BRISTOL-MYERS SQUIBB COMPANY-BMS-2020-057933

PATIENT
  Age: 65 Year
  Sex: Male
  Weight: 94.6 kg

DRUGS (2)
  1. NULOJIX [Suspect]
     Active Substance: BELATACEPT
     Indication: RENAL TRANSPLANT
     Dosage: 850 MILLIGRAM, Q2WK
     Route: 065
  2. NULOJIX [Suspect]
     Active Substance: BELATACEPT
     Dosage: 850 MILLIGRAM, QMO
     Route: 065

REACTIONS (3)
  - Off label use [Unknown]
  - Hospitalisation [Unknown]
  - Intentional product use issue [Unknown]
